FAERS Safety Report 8579915-9 (Version None)
Quarter: 2012Q3

REPORT INFORMATION
  Report Type: 
  Country: None (occurrence: None)
  Receive Date: 20120731
  Receipt Date: 20120731
  Transmission Date: 20120928
  Serious: Yes (Other)
  Sender: FDA-Public Use
  Company Number: None

PATIENT
  Age: 37 Year
  Sex: Female

DRUGS (2)
  1. MUCINEX D [Suspect]
     Indication: SINUS CONGESTION
     Dosage: 2 TABLETS WITH FULL GLASSWATER EVER 12 HOURS PO
     Route: 048
     Dates: start: 20120728, end: 20120729
  2. MUCINEX D [Suspect]
     Indication: NASAL CONGESTION
     Dosage: 2 TABLETS WITH FULL GLASSWATER EVER 12 HOURS PO
     Route: 048
     Dates: start: 20120728, end: 20120729

REACTIONS (1)
  - PRURITUS GENERALISED [None]
